FAERS Safety Report 5634724-5 (Version None)
Quarter: 2008Q1

REPORT INFORMATION
  Report Type: 
  Country: None (occurrence: None)
  Receive Date: 20080221
  Receipt Date: 20080221
  Transmission Date: 20080703
  Serious: Yes (Hospitalization)
  Sender: FDA-Public Use
  Company Number: None

PATIENT
  Age: 67 Year
  Sex: Male

DRUGS (3)
  1. ATORVASTATIN CALCIUM [Suspect]
     Indication: HEART TRANSPLANT
     Dosage: 80MG  EVERY DAY  PO
     Route: 048
     Dates: end: 20070929
  2. ATORVASTATIN CALCIUM [Suspect]
     Indication: HYPERLIPIDAEMIA
     Dosage: 80MG  EVERY DAY  PO
     Route: 048
     Dates: end: 20070929
  3. CYCLOSPORINE [Suspect]
     Indication: POST PROCEDURAL COMPLICATION
     Dosage: 100MG  BID  PO
     Route: 048

REACTIONS (2)
  - RENAL FAILURE ACUTE [None]
  - RHABDOMYOLYSIS [None]
